FAERS Safety Report 4374528-7 (Version None)
Quarter: 2004Q2

REPORT INFORMATION
  Report Type: 
  Country: None (occurrence: None)
  Receive Date: 20040602
  Receipt Date: 20040219
  Transmission Date: 20050107
  Serious: No
  Sender: FDA-Public Use
  Company Number: 200413131BWH

PATIENT
  Age: 71 Year
  Sex: Male

DRUGS (5)
  1. LEVITRA [Suspect]
     Indication: ERECTILE DYSFUNCTION
     Dosage: 10 MG, TIW, ORAL
     Route: 048
     Dates: start: 20040201
  2. ALPRAZOLAM [Concomitant]
  3. COUMADIN [Concomitant]
  4. THYROID TAB [Concomitant]
  5. CARDIZEM [Concomitant]

REACTIONS (2)
  - EJACULATION DISORDER [None]
  - EJACULATION FAILURE [None]
